FAERS Safety Report 14098189 (Version 1)
Quarter: 2017Q4

REPORT INFORMATION
  Report Type: Spontaneous
  Country: US (occurrence: US)
  Receive Date: 20171017
  Receipt Date: 20171017
  Transmission Date: 20180321
  Serious: No
  Sender: FDA-Public Use
  Company Number: US-TARO-2017TAR00196

PATIENT
  Age: 7 Month
  Sex: Male
  Weight: 9.7 kg

DRUGS (2)
  1. UNSPECIFIED CONSTIPATION MEDICATION [Concomitant]
     Indication: CONSTIPATION
     Dosage: UNK
  2. LORATADINE SYRUP (LORATADINE ORAL SOLUTION USP) 5MG/5ML [Suspect]
     Active Substance: LORATADINE
     Dosage: 0.5 TSP, ONCE
     Route: 048
     Dates: start: 201703, end: 201703

REACTIONS (3)
  - Wrong drug administered [Recovered/Resolved]
  - Somnolence [Recovered/Resolved]
  - Drug administered to patient of inappropriate age [Recovered/Resolved]

NARRATIVE: CASE EVENT DATE: 201703
